FAERS Safety Report 8445657-3 (Version None)
Quarter: 2012Q2

REPORT INFORMATION
  Report Type: 
  Country: None (occurrence: None)
  Receive Date: 20120618
  Receipt Date: 20120608
  Transmission Date: 20120825
  Serious: Yes (Other)
  Sender: FDA-Public Use
  Company Number: US-JNJFOC-20120604983

PATIENT

DRUGS (2)
  1. REMICADE [Suspect]
     Route: 042
     Dates: start: 20090112
  2. REMICADE [Suspect]
     Indication: PRODUCT USED FOR UNKNOWN INDICATION
     Route: 042
     Dates: start: 20090706

REACTIONS (1)
  - NEOPLASM MALIGNANT [None]
